FAERS Safety Report 4473659-0 (Version None)
Quarter: 2004Q4

REPORT INFORMATION
  Report Type: 
  Country: None (occurrence: None)
  Receive Date: 20041013
  Receipt Date: 20041004
  Transmission Date: 20050328
  Serious: Yes (Disabling)
  Sender: FDA-Public Use
  Company Number: US-MERCK-0410USA00369

PATIENT
  Age: 38 Year
  Sex: Male

DRUGS (8)
  1. [THERAPY UNSPECIFIED] [Concomitant]
     Route: 065
  2. PERCOCET [Concomitant]
     Route: 065
  3. FENTANYL [Concomitant]
     Route: 065
  4. REBIF [Concomitant]
     Route: 065
  5. PREVACID [Concomitant]
     Route: 065
  6. OXYCODONE HYDROCHLORIDE [Concomitant]
     Route: 065
  7. PREDNISONE [Concomitant]
     Route: 065
  8. VIOXX [Suspect]
     Indication: ARTHRITIS
     Route: 048
     Dates: start: 19990101, end: 20040930

REACTIONS (7)
  - CHEST PAIN [None]
  - DYSPEPSIA [None]
  - FEELING HOT AND COLD [None]
  - MICTURITION DISORDER [None]
  - NAUSEA [None]
  - OESOPHAGEAL PAIN [None]
  - PALPITATIONS [None]
